FAERS Safety Report 9266448 (Version 2)
Quarter: 2013Q3

REPORT INFORMATION
  Report Type: Spontaneous
  Country: US (occurrence: US)
  Receive Date: 20130502
  Receipt Date: 20130723
  Transmission Date: 20140515
  Serious: Yes (Hospitalization)
  Sender: FDA-Public Use
  Company Number: US-BIOGENIDEC-2013BI039240

PATIENT
  Sex: Male

DRUGS (18)
  1. TYSABRI [Suspect]
     Indication: MULTIPLE SCLEROSIS
     Route: 042
     Dates: start: 20070430, end: 20130320
  2. AMPYRA [Concomitant]
     Indication: MULTIPLE SCLEROSIS
  3. NASONEX [Concomitant]
  4. BACLOFEN [Concomitant]
  5. TIZANIDINE [Concomitant]
     Route: 048
  6. CEPHALEXIN [Concomitant]
     Route: 048
  7. CLONAZEPAM [Concomitant]
     Route: 048
  8. PRAMIPEXOLE DIHYDROCHLORIDE [Concomitant]
     Route: 048
  9. LISINOPRIL [Concomitant]
  10. HYDROCHLORTHIAZIDE [Concomitant]
  11. PROVIGIL [Concomitant]
  12. LASIX [Concomitant]
  13. HYDROCODONE-ACETAMINOPHEN [Concomitant]
  14. IBUPROFEN [Concomitant]
  15. SENOKOT [Concomitant]
  16. VITAMIN D [Concomitant]
  17. VITAMIN C [Concomitant]
  18. AMPYRA [Concomitant]

REACTIONS (7)
  - Serratia infection [Unknown]
  - Drug ineffective [Unknown]
  - Uhthoff^s phenomenon [Unknown]
  - Asthenia [Unknown]
  - Cystitis [Unknown]
  - Fungal infection [Unknown]
  - Gait disturbance [Not Recovered/Not Resolved]
